FAERS Safety Report 17837342 (Version 2)
Quarter: 2020Q2

REPORT INFORMATION
  Report Type: Spontaneous
  Country: DE (occurrence: DE)
  Receive Date: 20200529
  Receipt Date: 20200612
  Transmission Date: 20200714
  Serious: Yes (Death, Life-Threatening, Other)
  Sender: FDA-Public Use
  Company Number: DE-SUN PHARMACEUTICAL INDUSTRIES LTD-2020RR-248381

PATIENT
  Age: 38 Year
  Sex: Female

DRUGS (7)
  1. DOBUTAMINE [Suspect]
     Active Substance: DOBUTAMINE HYDROCHLORIDE
     Indication: CARDIOPLEGIA
     Dosage: UNK
     Route: 065
  2. DUROGESIC [Suspect]
     Active Substance: FENTANYL
     Indication: PRODUCT USED FOR UNKNOWN INDICATION
     Dosage: 12X12 MCG
     Route: 062
  3. BELOC ZOK MITE [Suspect]
     Active Substance: METOPROLOL SUCCINATE
     Indication: PRODUCT USED FOR UNKNOWN INDICATION
     Dosage: 10.5G
     Route: 048
  4. TAVOR (LORAZEPAM) [Suspect]
     Active Substance: LORAZEPAM
     Indication: PRODUCT USED FOR UNKNOWN INDICATION
     Dosage: 50MG
     Route: 048
  5. DUROGESIC [Suspect]
     Active Substance: FENTANYL
     Indication: PRODUCT USED FOR UNKNOWN INDICATION
     Dosage: 11X15 MCG
     Route: 062
  6. SUPRAJET [EPINEPHRINE] [Suspect]
     Active Substance: EPINEPHRINE
     Indication: CARDIOPLEGIA
     Dosage: UNK
     Route: 065
  7. LEVOSIMENDAN [Suspect]
     Active Substance: LEVOSIMENDAN
     Indication: CARDIOPLEGIA
     Dosage: UNK
     Route: 065

REACTIONS (10)
  - Completed suicide [Fatal]
  - Acute myocardial infarction [Fatal]
  - Toxicity to various agents [Unknown]
  - Drug ineffective [Unknown]
  - Embolic cerebral infarction [Unknown]
  - Cardiac failure [Unknown]
  - Respiratory failure [Unknown]
  - Intentional overdose [Fatal]
  - Altered state of consciousness [Unknown]
  - Metabolic acidosis [Unknown]
